FAERS Safety Report 26102081 (Version 1)
Quarter: 2025Q4

REPORT INFORMATION
  Report Type: Spontaneous
  Country: CN (occurrence: CN)
  Receive Date: 20251128
  Receipt Date: 20251128
  Transmission Date: 20260117
  Serious: Yes (Hospitalization, Other)
  Sender: ABBVIE
  Company Number: CN-LUNDBECK-DKLU4021966

PATIENT
  Age: 16 Year
  Sex: Female
  Weight: 41 kg

DRUGS (2)
  1. LEXAPRO [Suspect]
     Active Substance: ESCITALOPRAM OXALATE
     Indication: Completed suicide
     Dosage: OVERDOSE: 15 DOSAGE FORM
     Route: 048
  2. QUETIAPINE FUMARATE [Suspect]
     Active Substance: QUETIAPINE FUMARATE
     Indication: Completed suicide
     Dosage: 15 DOSAGE FORM
     Route: 048

REACTIONS (4)
  - Somnolence [Recovering/Resolving]
  - Intentional overdose [Recovering/Resolving]
  - Drug level abnormal [Recovering/Resolving]
  - Product administered to patient of inappropriate age [Unknown]
